FAERS Safety Report 7945860-2 (Version None)
Quarter: 2011Q4

REPORT INFORMATION
  Report Type: 
  Country: None (occurrence: None)
  Receive Date: 20111129
  Receipt Date: 20111116
  Transmission Date: 20120403
  Serious: Yes (Other)
  Sender: FDA-Public Use
  Company Number: PHHY2011ES100670

PATIENT
  Age: 76 Year
  Sex: Male

DRUGS (3)
  1. EVEROLIMUS [Suspect]
     Indication: RENAL TRANSPLANT
     Dosage: 1.5 MG/DAY
     Dates: start: 20100101
  2. CYCLOSPORINE [Suspect]
  3. MYCOPHENOLATE MOFETIL [Concomitant]
     Indication: RENAL TRANSPLANT
     Dosage: UNK UKN, UNK

REACTIONS (6)
  - PROTEINURIA [None]
  - MICROALBUMINURIA [None]
  - GLYCOSYLATED HAEMOGLOBIN INCREASED [None]
  - BLOOD URIC ACID ABNORMAL [None]
  - HYPERGLYCAEMIA [None]
  - GOUT [None]
